FAERS Safety Report 7191296-4 (Version None)
Quarter: 2010Q4

REPORT INFORMATION
  Report Type: 
  Country: None (occurrence: None)
  Receive Date: 20101223
  Receipt Date: 20101208
  Transmission Date: 20110411
  Serious: Yes (Hospitalization, Other)
  Sender: FDA-Public Use
  Company Number: US-ROCHE-727158

PATIENT
  Sex: Female
  Weight: 38.6 kg

DRUGS (11)
  1. ACCUTANE [Suspect]
     Indication: ACNE
     Route: 065
     Dates: start: 19870101, end: 19870601
  2. ACCUTANE [Suspect]
     Route: 065
     Dates: start: 20000501, end: 20010201
  3. PROZAC [Concomitant]
     Dates: start: 20000407
  4. NEURONTIN [Concomitant]
     Dates: start: 20000701
  5. LOESTRIN 1.5/30 [Concomitant]
     Dates: start: 20000423
  6. CLONAZEPAM [Concomitant]
     Dates: start: 20000406
  7. ALPRAZOLAM [Concomitant]
     Dates: start: 20000607
  8. LAMICTAL [Concomitant]
     Dates: start: 20000415
  9. OXYCODONE [Concomitant]
     Dates: start: 20001205
  10. DIFLUCAN [Concomitant]
     Dates: start: 20000526
  11. ACETAMINOPHEN [Concomitant]
     Dates: start: 20000101

REACTIONS (5)
  - COLITIS ULCERATIVE [None]
  - DEPRESSION [None]
  - GASTROINTESTINAL INJURY [None]
  - INFLAMMATORY BOWEL DISEASE [None]
  - INTESTINAL OBSTRUCTION [None]
